FAERS Safety Report 14659635 (Version 2)
Quarter: 2018Q3

REPORT INFORMATION
  Report Type: Other
  Country: JP (occurrence: JP)
  Receive Date: 20180320
  Receipt Date: 20180904
  Transmission Date: 20181010
  Serious: No
  Sender: FDA-Public Use
  Company Number: JP-ACTELION-A-CH2018-169094

PATIENT
  Age: 36 Year
  Sex: Female

DRUGS (10)
  1. EPOPROSTENOL ACT [Suspect]
     Active Substance: EPOPROSTENOL
     Dosage: UNK
     Route: 042
     Dates: start: 20170424
  2. SAMSCA [Concomitant]
     Active Substance: TOLVAPTAN
  3. SPIRONOLACTONE. [Concomitant]
     Active Substance: SPIRONOLACTONE
  4. TAKECAB [Concomitant]
     Active Substance: VONOPRAZAN FUMURATE
  5. ADCIRCA [Concomitant]
     Active Substance: TADALAFIL
  6. OXYGEN. [Concomitant]
     Active Substance: OXYGEN
  7. DIART [Concomitant]
     Active Substance: AZOSEMIDE
  8. EPOPROSTENOL ACT [Suspect]
     Active Substance: EPOPROSTENOL
     Indication: PULMONARY ARTERIAL HYPERTENSION
     Dosage: 78 NG/KG, PER MIN
     Route: 042
     Dates: start: 201706
  9. OPSUMIT [Concomitant]
     Active Substance: MACITENTAN
  10. URSO [Concomitant]
     Active Substance: URSODIOL

REACTIONS (1)
  - Iron deficiency anaemia [Recovering/Resolving]

NARRATIVE: CASE EVENT DATE: 201706
